FAERS Safety Report 7536260-8 (Version None)
Quarter: 2011Q2

REPORT INFORMATION
  Report Type: 
  Country: None (occurrence: None)
  Receive Date: 20110608
  Receipt Date: 20110608
  Transmission Date: 20111010
  Serious: Yes (Other)
  Sender: FDA-Public Use
  Company Number: None

PATIENT
  Age: 49 Year
  Sex: Female
  Weight: 147.8726 kg

DRUGS (1)
  1. ACTOPLUS MET [Suspect]
     Indication: TYPE 2 DIABETES MELLITUS
     Dosage: 1 TABLET BID PO
     Route: 048
     Dates: start: 20100107, end: 20110531

REACTIONS (9)
  - MUSCULAR WEAKNESS [None]
  - WEIGHT INCREASED [None]
  - LETHARGY [None]
  - OEDEMA PERIPHERAL [None]
  - MYALGIA [None]
  - MUSCLE SPASMS [None]
  - DEPRESSION [None]
  - JOINT RANGE OF MOTION DECREASED [None]
  - SLEEP DISORDER [None]
